FAERS Safety Report 4868638-5 (Version None)
Quarter: 2005Q4

REPORT INFORMATION
  Report Type: 
  Country: None (occurrence: None)
  Receive Date: 20051223
  Receipt Date: 20051205
  Transmission Date: 20060501
  Serious: Yes (Other)
  Sender: FDA-Public Use
  Company Number: GB200511001846

PATIENT
  Age: 54 Year
  Sex: Male
  Weight: 90 kg

DRUGS (18)
  1. XIGRIS [Suspect]
     Indication: SEPTIC SHOCK
     Dosage: 24 UG/KG/HR, INTRAVENOUS
     Route: 042
     Dates: start: 20051118, end: 20051119
  2. XIGRIS [Suspect]
     Indication: SEPTIC SHOCK
     Dosage: 24 UG/KG/HR, INTRAVENOUS
     Route: 042
     Dates: start: 20051118, end: 20051119
  3. XIGRIS [Suspect]
  4. PROPOFOL [Concomitant]
  5. ALFENTANIL [Concomitant]
  6. ADRENALNE (EPINEPHRINE) [Concomitant]
  7. NORADRENALINE (NOREPINEPHRINE) [Concomitant]
  8. DOPAMINE HCL [Concomitant]
  9. DOBUTAMNE (DOBUTAMINE) [Concomitant]
  10. EPOPROSTENOL (EPOPROSTENOL) [Concomitant]
  11. FLUCLOXACILLIN (FLUCLOXACILLIN) [Concomitant]
  12. TAZOCIN (PIPERACILLIN SODIUM, TAZOBACTAM SODIUM) [Concomitant]
  13. RANITIDINE [Concomitant]
  14. OMEPRAZOLE [Concomitant]
  15. HYDROCORTISONE [Concomitant]
  16. FLUDROCORTISONE ACETATE [Concomitant]
  17. GENTAMICIN [Concomitant]
  18. PENICILLIN [Concomitant]

REACTIONS (1)
  - THROMBOCYTOPENIA [None]
